FAERS Safety Report 4364450-4 (Version None)
Quarter: 2004Q2

REPORT INFORMATION
  Report Type: 
  Country: None (occurrence: None)
  Receive Date: 20040525
  Receipt Date: 20040217
  Transmission Date: 20050107
  Serious: Yes (Other)
  Sender: FDA-Public Use
  Company Number: BE-GLAXOSMITHKLINE-B0323755A

PATIENT
  Age: 49 Year
  Sex: Female

DRUGS (3)
  1. SEROXAT [Suspect]
     Dosage: 20MG PER DAY
     Route: 048
     Dates: start: 20040115, end: 20040302
  2. RANITIDINE [Concomitant]
     Dosage: 150MG PER DAY
     Route: 048
  3. XANAX RETARD [Concomitant]
     Route: 048

REACTIONS (4)
  - ANGIONEUROTIC OEDEMA [None]
  - CONDITION AGGRAVATED [None]
  - INCREASED TENDENCY TO BRUISE [None]
  - PURPURA [None]
